FAERS Safety Report 6961547-7 (Version None)
Quarter: 2010Q3

REPORT INFORMATION
  Report Type: 
  Country: None (occurrence: None)
  Receive Date: 20100823
  Receipt Date: 20100512
  Transmission Date: 20110219
  Serious: No
  Sender: FDA-Public Use
  Company Number: 009294

PATIENT
  Sex: Female
  Weight: 73.4 kg

DRUGS (15)
  1. CIMZIA [Suspect]
     Indication: CROHN'S DISEASE
     Dosage: (400 MG 1X/MONTH SUBCUTANEOUS)
     Route: 058
     Dates: start: 20100201
  2. METHADONE [Concomitant]
  3. HYDROCODONE [Concomitant]
  4. SIMVASTATIN [Concomitant]
  5. NEXIUM [Concomitant]
  6. MIRALAX [Concomitant]
  7. DEPAKOTE ER [Concomitant]
  8. FLEXERIL [Concomitant]
  9. XANAX [Concomitant]
  10. LIDODERM [Concomitant]
  11. VIVELLE-DOT [Concomitant]
  12. IMURAN [Concomitant]
  13. ENTOCORT EC [Concomitant]
  14. MARINOL [Concomitant]
  15. DICLOFENAC SODIUM [Concomitant]

REACTIONS (4)
  - CONTUSION [None]
  - ERYTHEMA [None]
  - INJECTION SITE INFLAMMATION [None]
  - SWELLING [None]
